FAERS Safety Report 24237745 (Version 2)
Quarter: 2024Q3

REPORT INFORMATION
  Report Type: Report from Study
  Country: KR (occurrence: KR)
  Receive Date: 20240822
  Receipt Date: 20240828
  Transmission Date: 20241017
  Serious: Yes (Hospitalization)
  Sender: VIVUS
  Company Number: KR-LOTUS-2022-LOTUS-049409

PATIENT
  Age: 43 Year
  Sex: Female

DRUGS (5)
  1. QSYMIA [Suspect]
     Active Substance: PHENTERMINE HYDROCHLORIDE\TOPIRAMATE
     Indication: Obesity
     Dosage: 3.75MG/23MG
     Route: 048
     Dates: start: 20220129, end: 20220211
  2. QSYMIA [Suspect]
     Active Substance: PHENTERMINE HYDROCHLORIDE\TOPIRAMATE
     Dosage: 7.5MG/46MG
     Route: 048
     Dates: start: 20220212, end: 20220512
  3. LEVOTHYROXINE SODIUM [Concomitant]
     Active Substance: LEVOTHYROXINE SODIUM
     Indication: Product used for unknown indication
     Route: 048
     Dates: start: 20160719
  4. ATORVASTATIN CALCIUM\EZETIMIBE [Concomitant]
     Active Substance: ATORVASTATIN CALCIUM\EZETIMIBE
     Indication: Product used for unknown indication
     Route: 048
     Dates: start: 20180330
  5. Olmediquel [Concomitant]
     Indication: Product used for unknown indication
     Route: 048
     Dates: start: 201701

REACTIONS (2)
  - Ovarian cyst [Recovered/Resolved]
  - Paraesthesia [Recovered/Resolved]

NARRATIVE: CASE EVENT DATE: 20220227
